FAERS Safety Report 10567194 (Version 1)
Quarter: 2014Q4

REPORT INFORMATION
  Report Type: Spontaneous
  Country: US (occurrence: US)
  Receive Date: 20141105
  Receipt Date: 20141105
  Transmission Date: 20150529
  Serious: No
  Sender: FDA-Public Use
  Company Number: US-009507513-1411USA000709

PATIENT
  Sex: Female

DRUGS (3)
  1. NEXPLANON [Suspect]
     Active Substance: ETONOGESTREL
     Dosage: AT THE NON-DOMINANT ARM
     Route: 059
  2. NEXPLANON [Suspect]
     Active Substance: ETONOGESTREL
     Indication: CONTRACEPTION
     Dosage: 1 ROD/ EVERY THREE YEARS, AT THE DOMINANT ARM
     Route: 059
     Dates: start: 20141027
  3. IMPLANON [Suspect]
     Active Substance: ETONOGESTREL
     Dosage: AT THE NON-DOMINANT ARM
     Route: 059

REACTIONS (4)
  - Device deployment issue [Not Recovered/Not Resolved]
  - Off label use [Unknown]
  - Implant site fibrosis [Unknown]
  - Implant site scar [Unknown]

NARRATIVE: CASE EVENT DATE: 20141027
